FAERS Safety Report 7001007-0 (Version None)
Quarter: 2010Q3

REPORT INFORMATION
  Report Type: 
  Country: None (occurrence: None)
  Receive Date: 20100920
  Receipt Date: 20100616
  Transmission Date: 20110219
  Serious: No
  Sender: FDA-Public Use
  Company Number: US-ASTRAZENECA-2010SE29538

PATIENT
  Age: 700 Month
  Sex: Male

DRUGS (7)
  1. SEROQUEL [Suspect]
     Route: 048
     Dates: start: 20040622
  2. ZOLOFT [Concomitant]
     Dates: start: 20040622
  3. LEVITRA [Concomitant]
     Dates: start: 20040407
  4. STRATTERA [Concomitant]
     Dates: start: 20040622
  5. ALPRAZOLAM [Concomitant]
     Dates: start: 20040622
  6. ALTACE [Concomitant]
     Dates: start: 20051201
  7. AMBIEN CR [Concomitant]
     Dates: start: 20051201

REACTIONS (3)
  - BACK PAIN [None]
  - DIABETES MELLITUS [None]
  - PROSTATIC PAIN [None]
